FAERS Safety Report 9387167 (Version 1)
Quarter: 2013Q3

REPORT INFORMATION
  Report Type: Report from Study
  Country: MX (occurrence: MX)
  Receive Date: 20130708
  Receipt Date: 20130708
  Transmission Date: 20140515
  Serious: Yes (Death, Disabling, Other)
  Sender: FDA-Public Use
  Company Number: MX-ROCHE-1245045

PATIENT
  Sex: Female

DRUGS (2)
  1. XELODA [Suspect]
     Indication: BREAST CANCER
     Dosage: FREQUENCY: DURING 14 DAYS FOLLOWED BY 7 DAY REST
     Route: 048
     Dates: start: 20121010
  2. AVASTIN [Suspect]
     Indication: BREAST CANCER
     Dosage: FREQUENCY: EVERY 21 DAYS
     Route: 042
     Dates: start: 20121010

REACTIONS (4)
  - Death [Fatal]
  - Drug-induced liver injury [Unknown]
  - Blood bilirubin increased [Unknown]
  - Palmar-plantar erythrodysaesthesia syndrome [Unknown]
